FAERS Safety Report 8108918-3 (Version None)
Quarter: 2012Q1

REPORT INFORMATION
  Report Type: 
  Country: None (occurrence: None)
  Receive Date: 20120202
  Receipt Date: 20110825
  Transmission Date: 20120608
  Serious: Yes (Death, Other)
  Sender: FDA-Public Use
  Company Number: GB-GLAXOSMITHKLINE-B0743922A

PATIENT
  Sex: Male

DRUGS (6)
  1. THIOTEPA [Suspect]
     Indication: BONE MARROW CONDITIONING REGIMEN
     Route: 065
  2. CYCLOSPORINE [Suspect]
     Indication: PROPHYLAXIS AGAINST GRAFT VERSUS HOST DISEASE
     Route: 065
  3. BUSULFAN [Suspect]
     Indication: BONE MARROW CONDITIONING REGIMEN
     Dosage: 14MGK UNKNOWN
     Route: 065
  4. METHOTREXATE [Suspect]
     Indication: PROPHYLAXIS AGAINST GRAFT VERSUS HOST DISEASE
     Route: 065
  5. CYCLOPHOSPHAMIDE [Suspect]
     Indication: BONE MARROW CONDITIONING REGIMEN
     Dosage: 200MGK UNKNOWN
     Route: 065
  6. ALEMTUZUMAB [Suspect]
     Indication: BONE MARROW CONDITIONING REGIMEN
     Route: 065

REACTIONS (4)
  - VENOOCCLUSIVE DISEASE [None]
  - CYTOMEGALOVIRUS INFECTION [None]
  - ACIDOSIS [None]
  - PNEUMONIA CYTOMEGALOVIRAL [None]
